FAERS Safety Report 13824836 (Version 1)
Quarter: 2017Q3

REPORT INFORMATION
  Report Type: Spontaneous
  Country: US (occurrence: US)
  Receive Date: 20170801
  Receipt Date: 20170801
  Transmission Date: 20171127
  Serious: No
  Sender: FDA-Public Use
  Company Number: None

PATIENT
  Age: 60 Year
  Sex: Female

DRUGS (1)
  1. HARVONI [Suspect]
     Active Substance: LEDIPASVIR\SOFOSBUVIR
     Indication: HEPATITIS C
     Route: 048
     Dates: start: 20170727

REACTIONS (7)
  - Fatigue [None]
  - Disturbance in attention [None]
  - Feeling abnormal [None]
  - Neuropathy peripheral [None]
  - Feeling drunk [None]
  - Chest discomfort [None]
  - Dyspepsia [None]

NARRATIVE: CASE EVENT DATE: 20170727
